FAERS Safety Report 20941994 (Version 1)
Quarter: 2022Q2

REPORT INFORMATION
  Report Type: Spontaneous
  Country: IN (occurrence: IN)
  Receive Date: 20220610
  Receipt Date: 20220610
  Transmission Date: 20220721
  Serious: Yes (Life-Threatening, Hospitalization, Other)
  Sender: FDA-Public Use
  Company Number: None

PATIENT
  Age: 33 Year
  Sex: Female

DRUGS (6)
  1. PREDNISOLONE [Suspect]
     Active Substance: PREDNISOLONE
     Indication: In vitro fertilisation
     Dosage: 10 MILLIGRAM, BID (IVF CYCLE 1)
     Route: 065
     Dates: start: 202008
  2. PREDNISOLONE [Suspect]
     Active Substance: PREDNISOLONE
     Indication: Infertility
     Dosage: 10 MILLIGRAM, EVERY 12 HRS
     Route: 065
     Dates: start: 202012
  3. ESTRADIOL [Suspect]
     Active Substance: ESTRADIOL
     Indication: In vitro fertilisation
     Dosage: 2 MILLIGRAM, TID (IVF CYCLE 1)
     Route: 065
     Dates: start: 202008
  4. ESTRADIOL [Suspect]
     Active Substance: ESTRADIOL
     Indication: Infertility
     Dosage: 2 MILLIGRAM, EVERY 8 HRS
     Route: 065
     Dates: start: 202012
  5. DYDROGESTERONE [Suspect]
     Active Substance: DYDROGESTERONE
     Indication: In vitro fertilisation
     Dosage: 10 MILLIGRAM (IVF CYCLE 1) FOR ONE MONTH
     Route: 065
     Dates: start: 202008
  6. DYDROGESTERONE [Suspect]
     Active Substance: DYDROGESTERONE
     Indication: Infertility
     Dosage: 10 MILLIGRAM
     Route: 065
     Dates: start: 202012

REACTIONS (5)
  - Hypertriglyceridaemia [Unknown]
  - Pancreatic toxicity [Unknown]
  - Ileus [Unknown]
  - Pancreatitis acute [Unknown]
  - Off label use [Unknown]

NARRATIVE: CASE EVENT DATE: 20200101
